FAERS Safety Report 4523887-0 (Version None)
Quarter: 2004Q4

REPORT INFORMATION
  Report Type: 
  Country: None (occurrence: None)
  Receive Date: 20041210
  Receipt Date: 20041202
  Transmission Date: 20050328
  Serious: Yes (Other)
  Sender: FDA-Public Use
  Company Number: PHHO2004CA17209

PATIENT
  Age: 45 Year
  Sex: Female
  Weight: 66 kg

DRUGS (4)
  1. SYNTHROID [Concomitant]
  2. VIOXX [Concomitant]
  3. LIPITOR [Concomitant]
  4. ZELNORM [Suspect]
     Dosage: 6 MG, BID
     Route: 048
     Dates: start: 20030411

REACTIONS (3)
  - HAEMORRHOID OPERATION [None]
  - HAEMORRHOIDAL HAEMORRHAGE [None]
  - SIGMOIDOSCOPY [None]
